FAERS Safety Report 25672974 (Version 1)
Quarter: 2025Q3

REPORT INFORMATION
  Report Type: Spontaneous
  Country: US (occurrence: US)
  Receive Date: 20250812
  Receipt Date: 20250812
  Transmission Date: 20251021
  Serious: Yes (Other)
  Sender: US WORLDMEDS
  Company Number: US-USWM-UWM202508-000133

PATIENT
  Sex: Male

DRUGS (1)
  1. EFLORNITHINE [Suspect]
     Active Substance: EFLORNITHINE
     Indication: Neuroblastoma
     Dosage: 2 PILLS TWICE A DAY (BID), VIA G-TUBE/ENTERAL

REACTIONS (5)
  - Neuroblastoma recurrent [Unknown]
  - Hyperthyroidism [Not Recovered/Not Resolved]
  - Speech disorder developmental [Not Recovered/Not Resolved]
  - Deafness [Not Recovered/Not Resolved]
  - Off label use [Unknown]

NARRATIVE: CASE EVENT DATE: 20250101
